FAERS Safety Report 4713593-1 (Version None)
Quarter: 2005Q3

REPORT INFORMATION
  Report Type: 
  Country: None (occurrence: None)
  Receive Date: 20050713
  Receipt Date: 20041209
  Transmission Date: 20060218
  Serious: Yes (Death, Life-Threatening)
  Sender: FDA-Public Use
  Company Number: 200413827JP

PATIENT
  Age: 77 Year
  Sex: Male
  Weight: 56 kg

DRUGS (7)
  1. TAXOTERE [Suspect]
     Indication: PROSTATE CANCER
     Route: 041
     Dates: start: 20040517, end: 20040517
  2. PACLITAXEL [Suspect]
     Indication: PROSTATE CANCER
     Route: 041
     Dates: start: 20040608, end: 20040608
  3. PARAPLATIN [Suspect]
     Indication: PROSTATE CANCER
     Route: 041
     Dates: start: 20040608, end: 20040608
  4. PRIMPERAN INJ [Concomitant]
     Indication: NAUSEA
     Route: 048
     Dates: start: 20040317, end: 20040511
  5. APLACE [Concomitant]
     Indication: GASTRITIS
     Route: 048
     Dates: start: 20040317, end: 20040511
  6. CORSONE [Concomitant]
     Route: 048
     Dates: end: 20040511
  7. ESTRAMUSTINE [Concomitant]
     Indication: PROSTATE CANCER
     Route: 048
     Dates: start: 20040516, end: 20040523

REACTIONS (13)
  - ABDOMINAL PAIN [None]
  - BACTERIAL INFECTION [None]
  - BLOOD CULTURE POSITIVE [None]
  - BLOOD PRESSURE DECREASED [None]
  - DIARRHOEA [None]
  - FAECALOMA [None]
  - ILEUS [None]
  - INTESTINAL HAEMORRHAGE [None]
  - NAUSEA [None]
  - PAIN [None]
  - PERITONITIS [None]
  - PYREXIA [None]
  - SHOCK [None]
